FAERS Safety Report 13590869 (Version 2)
Quarter: 2017Q4

REPORT INFORMATION
  Report Type: Spontaneous
  Country: US (occurrence: US)
  Receive Date: 20170529
  Receipt Date: 20171026
  Transmission Date: 20180320
  Serious: No
  Sender: FDA-Public Use
  Company Number: US-APOTEX-2017AP007831

PATIENT
  Sex: Female

DRUGS (1)
  1. LEVETIRACETAM EXTENDED-RELEASE TABLETS [Suspect]
     Active Substance: LEVETIRACETAM
     Indication: SEIZURE
     Route: 065

REACTIONS (1)
  - Product odour abnormal [Unknown]
